FAERS Safety Report 10776187 (Version 1)
Quarter: 2015Q1

REPORT INFORMATION
  Report Type: Other
  Country: US (occurrence: US)
  Receive Date: 20150209
  Receipt Date: 20150209
  Transmission Date: 20150721
  Serious: Yes (Death)
  Sender: FDA-Public Use
  Company Number: US-FRI-1000074326

PATIENT
  Age: 47 Year
  Sex: Male

DRUGS (6)
  1. CITALOPRAM [Suspect]
     Active Substance: CITALOPRAM HYDROBROMIDE
  2. MORPHINE [Suspect]
     Active Substance: MORPHINE
  3. DILTIAZEM [Suspect]
     Active Substance: DILTIAZEM
  4. QUETIAPINE [Suspect]
     Active Substance: QUETIAPINE
  5. TRAZODONE [Suspect]
     Active Substance: TRAZODONE HYDROCHLORIDE
  6. ETHANOL [Suspect]
     Active Substance: ALCOHOL

REACTIONS (1)
  - Drug abuse [Fatal]
